FAERS Safety Report 8191134-7 (Version None)
Quarter: 2012Q1

REPORT INFORMATION
  Report Type: 
  Country: None (occurrence: None)
  Receive Date: 20120307
  Receipt Date: 20120227
  Transmission Date: 20120608
  Serious: Yes (Other)
  Sender: FDA-Public Use
  Company Number: JP-GLAXOSMITHKLINE-B0785284A

PATIENT
  Sex: Male

DRUGS (3)
  1. ALPRAZOLAM [Concomitant]
     Indication: DEPRESSION
     Dosage: .4MG PER DAY
     Route: 048
     Dates: start: 20090701
  2. PAXIL [Suspect]
     Indication: DEPRESSION
     Dosage: 20MG PER DAY
     Route: 048
     Dates: start: 20090701
  3. ZOLPIDEM [Concomitant]
     Indication: DEPRESSION
     Dosage: 5MG PER DAY
     Route: 048
     Dates: start: 20090701

REACTIONS (13)
  - BACK PAIN [None]
  - MUSCULOSKELETAL STIFFNESS [None]
  - COUGH [None]
  - ASTHENIA [None]
  - SYMPATHICOTONIA [None]
  - SUICIDAL IDEATION [None]
  - MOVEMENT DISORDER [None]
  - FATIGUE [None]
  - IRRITABILITY [None]
  - PREGNANCY OF PARTNER [None]
  - HEADACHE [None]
  - MUSCLE RIGIDITY [None]
  - HYPERHIDROSIS [None]
